FAERS Safety Report 17284467 (Version 1)
Quarter: 2020Q1

REPORT INFORMATION
  Report Type: Spontaneous
  Country: HU (occurrence: HU)
  Receive Date: 20200117
  Receipt Date: 20200117
  Transmission Date: 20200409
  Serious: Yes (Hospitalization, Other)
  Sender: FDA-Public Use
  Company Number: HU-GLAXOSMITHKLINE-HU2020GSK009277

PATIENT

DRUGS (2)
  1. VALPROATE [Interacting]
     Active Substance: VALPROIC ACID
     Indication: SCHIZOPHRENIA
     Dosage: UNK
  2. LAMOTRIGINE. [Suspect]
     Active Substance: LAMOTRIGINE
     Indication: SCHIZOPHRENIA
     Dosage: UNK

REACTIONS (4)
  - Toxic epidermal necrolysis [Recovered/Resolved]
  - Drug interaction [Unknown]
  - Influenza like illness [Recovered/Resolved]
  - Skin necrosis [Recovered/Resolved]
